FAERS Safety Report 23802664 (Version 1)
Quarter: 2024Q2

REPORT INFORMATION
  Report Type: Spontaneous
  Country: US (occurrence: US)
  Receive Date: 20240501
  Receipt Date: 20240501
  Transmission Date: 20240716
  Serious: Yes (Other)
  Sender: FDA-Public Use
  Company Number: US-GLENMARK PHARMACEUTICALS-2024GMK089958

PATIENT

DRUGS (5)
  1. TACROLIMUS [Suspect]
     Active Substance: TACROLIMUS
     Indication: Immunosuppressant drug therapy
     Dosage: UNK (SERUM TROUGH 2-5 NG/ML)
     Route: 065
  2. NIVOLUMAB [Suspect]
     Active Substance: NIVOLUMAB
     Indication: Immunosuppressant drug therapy
     Dosage: 480 MILLIGRAM, ONCE EVERY FOUR WEEKS
     Route: 042
  3. NIVOLUMAB [Suspect]
     Active Substance: NIVOLUMAB
     Dosage: 3 MILLIGRAM PER KILOGRAM ONCE EVERY 3 WEEKS (PATIENTS WITH PROGRESSIVE DISEASE)
     Route: 065
  4. PREDNISONE [Suspect]
     Active Substance: PREDNISONE
     Indication: Immunosuppressant drug therapy
     Dosage: 5 MILLIGRAM, OD
     Route: 065
  5. IPILIMUMAB [Suspect]
     Active Substance: IPILIMUMAB
     Indication: Immunosuppressant drug therapy
     Dosage: 1 MILLIGRAM PER KILOGRAM (PATIENT WITH PROGRESSIVE DISEASE)
     Route: 042

REACTIONS (2)
  - Disease progression [Unknown]
  - Neuroendocrine carcinoma of the skin [Unknown]
